FAERS Safety Report 5893143-7 (Version None)
Quarter: 2008Q3

REPORT INFORMATION
  Report Type: 
  Country: None (occurrence: None)
  Receive Date: 20080923
  Receipt Date: 20071022
  Transmission Date: 20090109
  Serious: No
  Sender: FDA-Public Use
  Company Number: US-ASTRAZENECA-2007UW20299

PATIENT
  Age: 60 Year
  Sex: Female
  Weight: 61.2 kg

DRUGS (4)
  1. SEROQUEL [Suspect]
     Indication: BIPOLAR DISORDER
     Dosage: 100 MG QAM AND 400 MG QHS
     Route: 048
     Dates: start: 20070601
  2. SEROQUEL [Suspect]
     Indication: DEPRESSION
     Dosage: 100 MG QAM AND 400 MG QHS
     Route: 048
     Dates: start: 20070601
  3. SEROQUEL [Suspect]
     Indication: SLEEP DISORDER
     Dosage: 100 MG QAM AND 400 MG QHS
     Route: 048
     Dates: start: 20070601
  4. KLONOPIN [Concomitant]

REACTIONS (6)
  - ACTIVITIES OF DAILY LIVING IMPAIRED [None]
  - DRY MOUTH [None]
  - DYSPHAGIA [None]
  - FATIGUE [None]
  - FEELING ABNORMAL [None]
  - SALIVA ALTERED [None]
